FAERS Safety Report 8952816 (Version 1)
Quarter: 2012Q4

REPORT INFORMATION
  Report Type: 
  Country: CH (occurrence: CH)
  Receive Date: 20121204
  Receipt Date: 20121204
  Transmission Date: 20130627
  Serious: No
  Sender: FDA-Public Use
  Company Number: CH-ROCHE-1160080

PATIENT

DRUGS (10)
  1. ISOTRETINOIN [Suspect]
     Indication: ACNE
     Route: 065
  2. ISOTRETINOIN [Suspect]
     Indication: PSORIASIS
  3. ISOTRETINOIN [Suspect]
     Indication: ALOPECIA
  4. ISOTRETINOIN [Suspect]
     Indication: DERMATITIS
  5. ISOTRETINOIN [Suspect]
     Indication: CELLULITIS
  6. TRETINOIN [Suspect]
     Indication: ACNE
     Route: 065
  7. TRETINOIN [Suspect]
     Indication: PSORIASIS
  8. TRETINOIN [Suspect]
     Indication: ALOPECIA
  9. TRETINOIN [Suspect]
     Indication: DERMATITIS
  10. TRETINOIN [Suspect]
     Indication: CELLULITIS

REACTIONS (1)
  - Pregnancy [Unknown]
